FAERS Safety Report 17893619 (Version 1)
Quarter: 2020Q2

REPORT INFORMATION
  Report Type: Spontaneous
  Country: FR (occurrence: FR)
  Receive Date: 20200615
  Receipt Date: 20200615
  Transmission Date: 20200714
  Serious: Yes (Hospitalization)
  Sender: FDA-Public Use
  Company Number: FR-CADILA HEALTHCARE LIMITED-FR-ZYDUS-027136

PATIENT

DRUGS (8)
  1. SEROPLEX [Concomitant]
     Active Substance: ESCITALOPRAM OXALATE
     Dosage: 10 MILLIGRAM,(INTERVAL :1 DAYS)
     Route: 048
  2. ATORVASTATIN [Suspect]
     Active Substance: ATORVASTATIN
     Indication: HYPERCHOLESTEROLAEMIA
     Dosage: 10 MILLIGRAM
     Route: 048
  3. VALSARTAN. [Concomitant]
     Active Substance: VALSARTAN
     Dosage: 80 MILLIGRAM,(INTERVAL :1 DAYS)
     Route: 048
  4. IMOVANE [Concomitant]
     Active Substance: ZOPICLONE
     Dosage: 3.75 MILLIGRAM,(INTERVAL :1 DAYS)
     Route: 048
  5. CORDARONE [Concomitant]
     Active Substance: AMIODARONE HYDROCHLORIDE
     Dosage: 200 MILLIGRAM,(INTERVAL :1 DAYS)
     Route: 048
  6. PREVISCAN [Concomitant]
     Dosage: 15 MILLIGRAM,(INTERVAL :1 DAYS)
     Route: 048
  7. AMLOR [Concomitant]
     Active Substance: AMLODIPINE BESYLATE
     Dosage: 10 MILLIGRAM,(INTERVAL :1 DAYS)
     Route: 048
  8. EZETIMIBE. [Suspect]
     Active Substance: EZETIMIBE
     Indication: HYPERCHOLESTEROLAEMIA
     Dosage: 20 MILLIGRAM,(INTERVAL :1 DAYS)
     Route: 048

REACTIONS (5)
  - Blood cholesterol decreased [Not Recovered/Not Resolved]
  - Weight decreased [Not Recovered/Not Resolved]
  - Low density lipoprotein decreased [Not Recovered/Not Resolved]
  - Asthenia [Not Recovered/Not Resolved]
  - Muscular weakness [Not Recovered/Not Resolved]

NARRATIVE: CASE EVENT DATE: 2018
